FAERS Safety Report 5026363-4 (Version None)
Quarter: 2006Q2

REPORT INFORMATION
  Report Type: 
  Country: None (occurrence: None)
  Receive Date: 20060608
  Receipt Date: 20021118
  Transmission Date: 20061013
  Serious: No
  Sender: FDA-Public Use
  Company Number: 2002-11-1048

PATIENT
  Sex: Male
  Weight: 90 kg

DRUGS (9)
  1. ETHYOL [Suspect]
     Indication: PROPHYLAXIS
     Dosage: SUBCUTANEOUS
     Route: 058
     Dates: start: 20020904, end: 20020916
  2. TAXOL [Suspect]
     Indication: SMALL CELL CARCINOMA
     Dosage: ORAL
     Route: 048
  3. CISPLATIN [Suspect]
     Indication: SMALL CELL CARCINOMA
     Dosage: INTRAVENOUS
     Route: 042
  4. NORVASC [Concomitant]
  5. LOTENSIN [Concomitant]
  6. SALAGEN [Concomitant]
  7. VISTARIL [Concomitant]
  8. COMPAZINE [Concomitant]
  9. ZYRTEC [Concomitant]

REACTIONS (14)
  - ALANINE AMINOTRANSFERASE INCREASED [None]
  - ARTHRALGIA [None]
  - ASPARTATE AMINOTRANSFERASE INCREASED [None]
  - BLOOD AMYLASE INCREASED [None]
  - BLOOD GLUCOSE INCREASED [None]
  - CHILLS [None]
  - DRUG HYPERSENSITIVITY [None]
  - FLUSHING [None]
  - INJECTION SITE REACTION [None]
  - MYALGIA [None]
  - NAUSEA [None]
  - PRURITUS [None]
  - PYREXIA [None]
  - VOMITING [None]
